FAERS Safety Report 5766005-3 (Version None)
Quarter: 2008Q2

REPORT INFORMATION
  Report Type: 
  Country: None (occurrence: None)
  Receive Date: 20080611
  Receipt Date: 20080530
  Transmission Date: 20081010
  Serious: Yes (Other)
  Sender: FDA-Public Use
  Company Number: AU-PFIZER INC-2008032360

PATIENT
  Sex: Male
  Weight: 95 kg

DRUGS (16)
  1. LYRICA [Suspect]
     Indication: NEURALGIA
     Route: 048
     Dates: start: 20071004, end: 20080501
  2. KAPANOL [Suspect]
     Dates: start: 20080501, end: 20080501
  3. CARBAMAZEPINE [Concomitant]
  4. ALL OTHER THERAPEUTIC PRODUCTS [Concomitant]
  5. ACETAMINOPHEN [Concomitant]
  6. ENDONE [Concomitant]
  7. TEMAZEPAM [Concomitant]
  8. SIMVASTATIN [Concomitant]
  9. CLOPIDOGREL [Concomitant]
  10. MULTI B-FORTE [Concomitant]
  11. FOLIC ACID [Concomitant]
  12. PANTOPRAZOLE [Concomitant]
  13. METOPROLOL [Concomitant]
  14. LANTUS [Concomitant]
  15. NOVORAPID [Concomitant]
  16. ASPIRIN [Concomitant]

REACTIONS (4)
  - CATARACT [None]
  - IMPAIRED DRIVING ABILITY [None]
  - VISION BLURRED [None]
  - VISUAL ACUITY REDUCED [None]
